FAERS Safety Report 15389175 (Version 1)
Quarter: 2018Q3

REPORT INFORMATION
  Report Type: Report from Study
  Country: US (occurrence: US)
  Receive Date: 20180917
  Receipt Date: 20180917
  Transmission Date: 20181010
  Serious: Yes (Death)
  Sender: FDA-Public Use
  Company Number: US-ROCHE-2185127

PATIENT
  Sex: Male

DRUGS (4)
  1. BENDAMUSTINE [Suspect]
     Active Substance: BENDAMUSTINE
     Indication: B-CELL LYMPHOMA REFRACTORY
     Dosage: ON DAY 1 OF A 21?DAY CYCLE
     Route: 042
  2. RITUXIMAB. [Suspect]
     Active Substance: RITUXIMAB
     Indication: B-CELL LYMPHOMA REFRACTORY
     Dosage: ON DAY 1 OF A 21?DAY CYCLE
     Route: 042
  3. PEGFILGRASTIM [Concomitant]
     Active Substance: PEGFILGRASTIM
     Dosage: ADMINISTERED ON DAY 2
     Route: 065
  4. PIXANTRONE [Suspect]
     Active Substance: PIXANTRONE
     Indication: B-CELL LYMPHOMA REFRACTORY
     Dosage: ON DAY 1 OF A 21?DAY CYCLE
     Route: 042

REACTIONS (1)
  - Cardiomyopathy [Fatal]
